FAERS Safety Report 7709414-5 (Version None)
Quarter: 2011Q3

REPORT INFORMATION
  Report Type: 
  Country: None (occurrence: None)
  Receive Date: 20110825
  Receipt Date: 20110810
  Transmission Date: 20111222
  Serious: Yes (Other)
  Sender: FDA-Public Use
  Company Number: SE-UCBSA-039060

PATIENT
  Sex: Female

DRUGS (1)
  1. CIMZIA [Suspect]
     Indication: ANKYLOSING SPONDYLITIS
     Dosage: 200,200MG
     Route: 058
     Dates: start: 20110523, end: 20110801

REACTIONS (5)
  - HERPES SIMPLEX [None]
  - URINARY TRACT INFECTION [None]
  - ARTHRALGIA [None]
  - DEPRESSION [None]
  - FATIGUE [None]
